FAERS Safety Report 14063835 (Version 2)
Quarter: 2018Q1

REPORT INFORMATION
  Report Type: Spontaneous
  Country: AU (occurrence: AU)
  Receive Date: 20171009
  Receipt Date: 20180308
  Transmission Date: 20180508
  Serious: Yes (Death, Other)
  Sender: FDA-Public Use
  Company Number: PHHY2017AU147731

PATIENT
  Sex: Female

DRUGS (9)
  1. POSACONAZOL [Suspect]
     Active Substance: POSACONAZOLE
     Indication: PRODUCT USED FOR UNKNOWN INDICATION
     Dosage: UNK
     Route: 065
     Dates: start: 20140711
  2. VORICONAZOLE. [Suspect]
     Active Substance: VORICONAZOLE
     Indication: PRODUCT USED FOR UNKNOWN INDICATION
     Dosage: UNK
     Route: 065
     Dates: start: 20140711
  3. FLUDARABINE [Suspect]
     Active Substance: FLUDARABINE PHOSPHATE
     Indication: ACUTE MYELOID LEUKAEMIA
     Dosage: 30 MG/M2, QD (DAY 1 TO 5)
     Route: 042
     Dates: start: 20140809
  4. CYTARABINE. [Suspect]
     Active Substance: CYTARABINE
     Indication: ACUTE MYELOID LEUKAEMIA
     Dosage: 100 MG/M2, QD (DAY 1 TO 7)
     Route: 041
     Dates: start: 20140711
  5. CYTARABINE. [Suspect]
     Active Substance: CYTARABINE
     Dosage: 100 MG/M2, QD (DAY 1 TO 5)
     Route: 041
     Dates: start: 20140809
  6. VORICONAZOLE. [Suspect]
     Active Substance: VORICONAZOLE
     Dosage: UNK
     Route: 065
     Dates: start: 20140809
  7. AMSACRINE [Suspect]
     Active Substance: AMSACRINE
     Indication: ACUTE MYELOID LEUKAEMIA
     Dosage: 100 MG/M2, QD
     Route: 042
     Dates: start: 20140809
  8. IDARUBICIN [Suspect]
     Active Substance: IDARUBICIN
     Indication: ACUTE MYELOID LEUKAEMIA
     Dosage: 12 MG/M2, QD (DAY 1 TO 3)
     Route: 042
     Dates: start: 20140711
  9. POSACONAZOL [Suspect]
     Active Substance: POSACONAZOLE
     Dosage: UNK
     Route: 065
     Dates: start: 20140809

REACTIONS (2)
  - Death [Fatal]
  - Acute myeloid leukaemia recurrent [Unknown]
